FAERS Safety Report 20431208 (Version 1)
Quarter: 2022Q1

REPORT INFORMATION
  Report Type: Spontaneous
  Country: US (occurrence: US)
  Receive Date: 20220204
  Receipt Date: 20220204
  Transmission Date: 20220423
  Serious: No
  Sender: FDA-Public Use
  Company Number: US-PERRIGO-21US002387

PATIENT
  Age: 33 Year
  Sex: Female
  Weight: 68.027 kg

DRUGS (7)
  1. TRETINOIN [Suspect]
     Active Substance: TRETINOIN
     Indication: Scar
     Dosage: PEA-SIZED AMOUNT, QOD
     Route: 061
     Dates: start: 20210106, end: 20210112
  2. TRETINOIN [Suspect]
     Active Substance: TRETINOIN
     Indication: Skin hyperpigmentation
     Dosage: PEA-SIZED AMOUNT, NIGHTLY
     Route: 061
     Dates: start: 20210113, end: 20210120
  3. TRETINOIN [Suspect]
     Active Substance: TRETINOIN
     Indication: Acne
     Dosage: HALF PEA-SIZED AMOUNT, EVERY 2 DAYS
     Route: 061
     Dates: start: 20210122, end: 20210205
  4. UNSPECIFIED INGREDIENT [Suspect]
     Active Substance: UNSPECIFIED INGREDIENT
     Indication: Routine health maintenance
     Dosage: UNKNOWN, UNKNOWN
     Route: 061
     Dates: start: 20210106, end: 20210120
  5. METROCREAM [Concomitant]
     Active Substance: METRONIDAZOLE
     Indication: Scar
     Dosage: 1 APPLICATION, PRN
     Route: 061
     Dates: start: 202101, end: 202101
  6. METROCREAM [Concomitant]
     Active Substance: METRONIDAZOLE
     Indication: Skin hyperpigmentation
  7. METROCREAM [Concomitant]
     Active Substance: METRONIDAZOLE
     Indication: Acne

REACTIONS (6)
  - Application site pain [Not Recovered/Not Resolved]
  - Application site erythema [Recovered/Resolved]
  - Application site irritation [Not Recovered/Not Resolved]
  - Off label use [Recovered/Resolved]
  - Wrong technique in product usage process [Recovered/Resolved]
  - Inappropriate schedule of product administration [Not Recovered/Not Resolved]

NARRATIVE: CASE EVENT DATE: 20210106
